FAERS Safety Report 24921288 (Version 2)
Quarter: 2025Q1

REPORT INFORMATION
  Report Type: Spontaneous
  Country: TW (occurrence: TW)
  Receive Date: 20250204
  Receipt Date: 20250225
  Transmission Date: 20250408
  Serious: Yes (Other)
  Sender: MACLEODS
  Company Number: TW-MACLEODS PHARMA-MAC2025051413

PATIENT

DRUGS (2)
  1. LIDOCAINE [Suspect]
     Active Substance: LIDOCAINE
     Indication: Nerve block
     Route: 065
  2. LIDOCAINE [Suspect]
     Active Substance: LIDOCAINE
     Route: 065

REACTIONS (16)
  - Neurotoxicity [Recovered/Resolved]
  - Hallucination [Recovered/Resolved]
  - Headache [Recovered/Resolved]
  - Visual impairment [Recovered/Resolved]
  - Auditory disorder [Recovered/Resolved]
  - Muscle twitching [Recovered/Resolved]
  - Trismus [Recovered/Resolved]
  - Muscle rigidity [Recovered/Resolved]
  - Restlessness [Recovered/Resolved]
  - Agitation [Recovered/Resolved]
  - Logorrhoea [Recovered/Resolved]
  - Repetitive speech [Recovered/Resolved]
  - Psychotic disorder [Recovered/Resolved]
  - Tinnitus [Recovered/Resolved]
  - Dissociative disorder [Recovered/Resolved]
  - Tachycardia [Recovered/Resolved]
